FAERS Safety Report 24869534 (Version 1)
Quarter: 2025Q1

REPORT INFORMATION
  Report Type: Spontaneous
  Country: US (occurrence: US)
  Receive Date: 20250121
  Receipt Date: 20250121
  Transmission Date: 20250408
  Serious: Yes (Death, Hospitalization, Other)
  Sender: PFIZER
  Company Number: US-PFIZER INC-202500012506

PATIENT
  Age: 76 Year
  Sex: Female

DRUGS (6)
  1. POTASSIUM CHLORIDE [Suspect]
     Active Substance: POTASSIUM CHLORIDE
     Route: 065
  2. ACETAMINOPHEN [Suspect]
     Active Substance: ACETAMINOPHEN
     Route: 065
  3. METFORMIN [Suspect]
     Active Substance: METFORMIN HYDROCHLORIDE
     Route: 065
  4. BUPROPION [Suspect]
     Active Substance: BUPROPION
     Route: 065
  5. OXYCODONE [Suspect]
     Active Substance: OXYCODONE
     Route: 065
  6. METHAMPHETAMINE [Suspect]
     Active Substance: METHAMPHETAMINE
     Route: 065

REACTIONS (1)
  - Completed suicide [Fatal]

NARRATIVE: CASE EVENT DATE: 20230101
